FAERS Safety Report 8966660 (Version 2)
Quarter: 2012Q4

REPORT INFORMATION
  Report Type: 
  Country: GB (occurrence: GB)
  Receive Date: 20121217
  Receipt Date: 20121226
  Transmission Date: 20130627
  Serious: Yes (Life-Threatening, Hospitalization)
  Sender: FDA-Public Use
  Company Number: GB-TEVA-106788ISR

PATIENT
  Age: 77 Year
  Sex: Female

DRUGS (8)
  1. DICLOFENAC [Suspect]
     Indication: ARTHRALGIA
     Dosage: 150 Milligram Daily;
     Route: 048
     Dates: start: 20040922, end: 20040929
  2. IBUPROFEN [Suspect]
     Indication: ARTHRALGIA
     Dosage: 1200 Milligram Daily;
     Route: 048
     Dates: start: 20040929, end: 20041017
  3. CELECOXIB [Suspect]
     Indication: ARTHRALGIA
     Dosage: 100 Milligram Daily;
     Route: 048
     Dates: start: 20040910, end: 20040922
  4. AMOXICILLIN [Concomitant]
     Indication: URINARY TRACT INFECTION
     Dosage: 750 Milligram Daily;
     Route: 048
     Dates: start: 20040910, end: 20040919
  5. PARACETAMOL [Concomitant]
     Indication: PAIN
     Dosage: 3 Gram Daily;
     Route: 048
     Dates: start: 20040920, end: 20040922
  6. TRIMETHOPRIM [Concomitant]
     Indication: URINARY TRACT INFECTION
     Dosage: 400 Milligram Daily;
     Route: 048
     Dates: start: 20040920, end: 20040922
  7. PANADEINE CO [Concomitant]
     Indication: PAIN
     Route: 048
     Dates: start: 20040922, end: 20040929
  8. PARAMOL-118 [Concomitant]
     Indication: PAIN
     Route: 048
     Dates: start: 20040929, end: 20041017

REACTIONS (2)
  - Thrombocytopenia [Recovering/Resolving]
  - Contusion [Recovering/Resolving]
